FAERS Safety Report 14777422 (Version 2)
Quarter: 2018Q4

REPORT INFORMATION
  Report Type: Report from Study
  Country: US (occurrence: US)
  Receive Date: 20180419
  Receipt Date: 20181213
  Transmission Date: 20190204
  Serious: Yes (Hospitalization)
  Sender: FDA-Public Use
  Company Number: US-BAUSCH-BL-2018-010132

PATIENT
  Age: 73 Year
  Sex: Male

DRUGS (2)
  1. APRISO [Suspect]
     Active Substance: MESALAMINE
     Indication: PRODUCT USE IN UNAPPROVED INDICATION
  2. APRISO [Suspect]
     Active Substance: MESALAMINE
     Indication: COLITIS
     Route: 048

REACTIONS (8)
  - Head injury [Recovering/Resolving]
  - Cardiac disorder [Recovering/Resolving]
  - Fall [Recovering/Resolving]
  - Gastric disorder [Recovering/Resolving]
  - Internal haemorrhage [Recovering/Resolving]
  - Product use in unapproved indication [Not Recovered/Not Resolved]
  - Skull fracture [Recovering/Resolving]
  - Thrombosis [Recovering/Resolving]

NARRATIVE: CASE EVENT DATE: 20180307
